FAERS Safety Report 24961187 (Version 2)
Quarter: 2025Q1

REPORT INFORMATION
  Report Type: Spontaneous
  Country: ES (occurrence: ES)
  Receive Date: 20250212
  Receipt Date: 20250305
  Transmission Date: 20250408
  Serious: Yes (Other)
  Sender: OTSUKA
  Company Number: ES-MMM-Otsuka-I5EM2AYV

PATIENT
  Age: 32 Year
  Sex: Female

DRUGS (3)
  1. ARIPIPRAZOLE [Suspect]
     Active Substance: ARIPIPRAZOLE
     Indication: Substance-induced psychotic disorder
     Route: 065
  2. PALIPERIDONE PALMITATE [Suspect]
     Active Substance: PALIPERIDONE PALMITATE
     Indication: Substance-induced psychotic disorder
     Route: 065
  3. CLOZAPINE [Suspect]
     Active Substance: CLOZAPINE
     Indication: Substance-induced psychotic disorder
     Route: 065

REACTIONS (9)
  - Schizophrenia [Unknown]
  - Anhedonia [Recovered/Resolved]
  - Drug tolerance decreased [Recovered/Resolved]
  - Sexual dysfunction [Recovered/Resolved]
  - Apathy [Recovered/Resolved]
  - Akathisia [Recovered/Resolved]
  - Sedation [Recovered/Resolved]
  - Treatment noncompliance [Recovered/Resolved]
  - Off label use [Recovered/Resolved]
